FAERS Safety Report 12251076 (Version 2)
Quarter: 2016Q2

REPORT INFORMATION
  Report Type: Spontaneous
  Country: US (occurrence: US)
  Receive Date: 20160410
  Receipt Date: 20160513
  Transmission Date: 20160815
  Serious: No
  Sender: FDA-Public Use
  Company Number: US-JNJFOC-20160316096

PATIENT
  Age: 78 Year
  Sex: Female

DRUGS (2)
  1. ZYRTEC [Suspect]
     Active Substance: CETIRIZINE HYDROCHLORIDE
     Route: 048
  2. ZYRTEC [Suspect]
     Active Substance: CETIRIZINE HYDROCHLORIDE
     Indication: MULTIPLE ALLERGIES
     Dosage: 1-2 TABLETS IN 24 HOURS
     Route: 048
     Dates: start: 20160315

REACTIONS (5)
  - Panic reaction [Not Recovered/Not Resolved]
  - Accidental overdose [Unknown]
  - Anxiety [Not Recovered/Not Resolved]
  - Wrong patient received medication [Unknown]
  - Dizziness [Unknown]

NARRATIVE: CASE EVENT DATE: 20160315
